FAERS Safety Report 5481362-3 (Version None)
Quarter: 2007Q4

REPORT INFORMATION
  Report Type: 
  Country: None (occurrence: None)
  Receive Date: 20071005
  Receipt Date: 20071005
  Transmission Date: 20080405
  Serious: No
  Sender: FDA-Public Use
  Company Number: None

PATIENT
  Age: 35 Year
  Sex: Male
  Weight: 72.5755 kg

DRUGS (1)
  1. ZOLPIDEM [Suspect]
     Dosage: 10MG AS NEEDED PO
     Route: 048
     Dates: start: 20070914, end: 20070915

REACTIONS (1)
  - DRUG INEFFECTIVE [None]
